FAERS Safety Report 10173138 (Version 3)
Quarter: 2019Q1

REPORT INFORMATION
  Report Type: Spontaneous
  Country: US (occurrence: US)
  Receive Date: 20140515
  Receipt Date: 20190228
  Transmission Date: 20190417
  Serious: No
  Sender: FDA-Public Use
  Company Number: US-PFIZER INC-2014129193

PATIENT
  Age: 69 Year
  Sex: Female

DRUGS (35)
  1. THORAZINE [Suspect]
     Active Substance: CHLORPROMAZINE
     Dosage: UNK
  2. ALOCRIL [Suspect]
     Active Substance: NEDOCROMIL SODIUM
     Dosage: UNK
  3. CODEINE [Suspect]
     Active Substance: CODEINE
     Dosage: UNK
  4. PENTOTHAL [Suspect]
     Active Substance: THIOPENTAL SODIUM
     Dosage: UNK
  5. VOLTAREN [Suspect]
     Active Substance: DICLOFENAC SODIUM
     Dosage: UNK
  6. DURICEF [Suspect]
     Active Substance: CEFADROXIL
     Dosage: UNK
  7. NABUMETONE. [Suspect]
     Active Substance: NABUMETONE
     Dosage: UNK
  8. DEMEROL [Suspect]
     Active Substance: MEPERIDINE HYDROCHLORIDE
     Dosage: UNK
  9. DILAUDID [Suspect]
     Active Substance: HYDROMORPHONE HYDROCHLORIDE
     Dosage: UNK
  10. WELLBUTRIN [Suspect]
     Active Substance: BUPROPION HYDROCHLORIDE
     Dosage: UNK
  11. VERAPAMIL HCL [Suspect]
     Active Substance: VERAPAMIL HYDROCHLORIDE
     Dosage: UNK
  12. CARBOCAINE [Suspect]
     Active Substance: MEPIVACAINE HYDROCHLORIDE
     Dosage: UNK
  13. LUNESTA [Suspect]
     Active Substance: ESZOPICLONE
     Dosage: UNK
  14. DARBID [Suspect]
     Active Substance: ISOPROPAMIDE IODIDE
     Dosage: UNK
  15. NEMBUTAL SODIUM [Suspect]
     Active Substance: PENTOBARBITAL SODIUM
     Dosage: UNK
  16. QUININE [Suspect]
     Active Substance: QUININE
     Dosage: UNK
  17. WYDASE [Suspect]
     Active Substance: HYALURONIDASE
     Dosage: UNK
  18. SODIUM CROMOGLICATE [Suspect]
     Active Substance: CROMOLYN SODIUM
     Dosage: UNK
  19. PLENDIL [Suspect]
     Active Substance: FELODIPINE
     Dosage: UNK
  20. VALIUM [Suspect]
     Active Substance: DIAZEPAM
     Dosage: UNK
  21. VERAMYST [Suspect]
     Active Substance: FLUTICASONE FUROATE
     Dosage: UNK
  22. QUININE SULFATE. [Suspect]
     Active Substance: QUININE SULFATE
     Dosage: UNK
  23. INDERAL [Suspect]
     Active Substance: PROPRANOLOL HYDROCHLORIDE
     Dosage: UNK
  24. SINEQUAN [Suspect]
     Active Substance: DOXEPIN HYDROCHLORIDE
     Dosage: UNK
  25. TIGAN [Suspect]
     Active Substance: TRIMETHOBENZAMIDE HYDROCHLORIDE
     Dosage: UNK
  26. GALANTAMINE. [Suspect]
     Active Substance: GALANTAMINE
     Dosage: UNK
  27. CLARITIN-D NOS [Suspect]
     Active Substance: LORATADINE\PSEUDOEPHEDRINE SULFATE
     Dosage: UNK
  28. SULAR [Suspect]
     Active Substance: NISOLDIPINE
     Dosage: UNK
  29. TIZANIDINE HCL [Suspect]
     Active Substance: TIZANIDINE HYDROCHLORIDE
     Dosage: UNK
  30. ACCUPRIL [Suspect]
     Active Substance: QUINAPRIL HYDROCHLORIDE
     Dosage: UNK
  31. DICLOFENAC SODIUM. [Suspect]
     Active Substance: DICLOFENAC SODIUM
     Dosage: UNK
  32. BETAMETHASONE. [Suspect]
     Active Substance: BETAMETHASONE
     Dosage: UNK
  33. PAMELOR [Suspect]
     Active Substance: NORTRIPTYLINE HYDROCHLORIDE
     Dosage: UNK
  34. PERCODAN [Suspect]
     Active Substance: ASPIRIN\OXYCODONE HYDROCHLORIDE
     Dosage: UNK
  35. CLARITIN [Suspect]
     Active Substance: LORATADINE
     Dosage: UNK

REACTIONS (1)
  - Drug hypersensitivity [Unknown]
